FAERS Safety Report 16846406 (Version 1)
Quarter: 2019Q3

REPORT INFORMATION
  Report Type: Report from Study
  Country: US (occurrence: US)
  Receive Date: 20190924
  Receipt Date: 20190924
  Transmission Date: 20191005
  Serious: Yes (Other)
  Sender: FDA-Public Use
  Company Number: US-NALPROPION PHARMACEUTICALS INC.-2019-008536

PATIENT
  Age: 38 Year
  Sex: Female

DRUGS (3)
  1. CONTRAVE [Suspect]
     Active Substance: BUPROPION HYDROCHLORIDE\NALTREXONE HYDROCHLORIDE
     Indication: WEIGHT CONTROL
     Dosage: ONE TABLET IN AM
     Route: 048
     Dates: start: 201907, end: 201907
  2. CONTRAVE [Suspect]
     Active Substance: BUPROPION HYDROCHLORIDE\NALTREXONE HYDROCHLORIDE
     Dosage: RESTARTED: ONE TABLET DAILY (STARTED ON 08-SEP-2019 OR 09-SEP-2019)
     Route: 048
  3. CONTRAVE [Suspect]
     Active Substance: BUPROPION HYDROCHLORIDE\NALTREXONE HYDROCHLORIDE
     Dosage: ONE TAB IN AM AND ONE TABLET IN PM
     Route: 048
     Dates: start: 201907, end: 201907

REACTIONS (2)
  - Dental restoration failure [Not Recovered/Not Resolved]
  - Pneumonia [Recovered/Resolved]

NARRATIVE: CASE EVENT DATE: 201907
